FAERS Safety Report 5363693-0 (Version None)
Quarter: 2007Q2

REPORT INFORMATION
  Report Type: 
  Country: None (occurrence: None)
  Receive Date: 20070620
  Receipt Date: 20070614
  Transmission Date: 20071010
  Serious: Yes (Other)
  Sender: FDA-Public Use
  Company Number: FR-AVENTIS-200711388FR

PATIENT
  Age: 47 Year
  Sex: Female
  Weight: 59 kg

DRUGS (3)
  1. KETEK [Suspect]
     Indication: SINUSITIS
     Route: 048
     Dates: start: 20051103, end: 20051108
  2. KETEK [Suspect]
     Route: 048
     Dates: start: 20060201, end: 20060201
  3. CELESTENE                          /00008501/ [Concomitant]
     Route: 048

REACTIONS (4)
  - ARTHRALGIA [None]
  - MUSCULAR WEAKNESS [None]
  - PRURITUS [None]
  - URTICARIA CHRONIC [None]
